FAERS Safety Report 22672678 (Version 2)
Quarter: 2025Q2

REPORT INFORMATION
  Report Type: Spontaneous
  Country: AU (occurrence: AU)
  Receive Date: 20230705
  Receipt Date: 20250624
  Transmission Date: 20250716
  Serious: Yes (Other)
  Sender: ORGANON
  Company Number: AU-ORGANON-O2306AUS003329

PATIENT
  Age: 70 Year
  Sex: Male

DRUGS (5)
  1. CARBIDOPA\LEVODOPA [Suspect]
     Active Substance: CARBIDOPA\LEVODOPA
  2. EZETIMIBE [Suspect]
     Active Substance: EZETIMIBE
  3. MIRTAZAPINE [Suspect]
     Active Substance: MIRTAZAPINE
  4. ATORVASTATIN [Suspect]
     Active Substance: ATORVASTATIN
  5. IRBESARTAN [Suspect]
     Active Substance: IRBESARTAN

REACTIONS (3)
  - Choking [Unknown]
  - Foreign body in throat [Unknown]
  - Product use complaint [Unknown]
